FAERS Safety Report 7585455-6 (Version None)
Quarter: 2011Q3

REPORT INFORMATION
  Report Type: 
  Country: None (occurrence: None)
  Receive Date: 20110701
  Receipt Date: 20110622
  Transmission Date: 20111222
  Serious: Yes (Life-Threatening)
  Sender: FDA-Public Use
  Company Number: US-BAYER-201035735NA

PATIENT
  Age: 31 Year
  Sex: Female
  Weight: 54.422 kg

DRUGS (7)
  1. MULTI-VITAMINS [Concomitant]
     Dosage: UNK
     Dates: start: 20050101
  2. YASMIN [Suspect]
     Dosage: UNK
     Dates: start: 20060101, end: 20061001
  3. LEXAPRO [Concomitant]
     Indication: ANXIETY
     Dosage: UNK
     Dates: start: 20030101
  4. YAZ [Suspect]
     Indication: PRODUCT USED FOR UNKNOWN INDICATION
     Route: 048
  5. YASMIN [Suspect]
     Dosage: UNK
     Dates: start: 20070601, end: 20070801
  6. NSAID'S [Concomitant]
     Dosage: UNK UNK, PRN
  7. YASMIN [Suspect]
     Indication: ORAL CONTRACEPTION
     Dosage: UNK UNK, UNK
     Route: 048
     Dates: start: 20040901, end: 20051101

REACTIONS (1)
  - CEREBRAL INFARCTION [None]
